FAERS Safety Report 17570461 (Version 1)
Quarter: 2020Q1

REPORT INFORMATION
  Report Type: Report from Study
  Country: US (occurrence: US)
  Receive Date: 20200323
  Receipt Date: 20200323
  Transmission Date: 20200409
  Serious: Yes (Life-Threatening, Hospitalization, Other)
  Sender: FDA-Public Use
  Company Number: US-BRISTOL-MYERS SQUIBB COMPANY-BMS-2020-014059

PATIENT
  Age: 59 Year
  Sex: Female
  Weight: 57.32 kg

DRUGS (4)
  1. VE800 [Suspect]
     Active Substance: INVESTIGATIONAL PRODUCT
     Indication: METASTATIC MALIGNANT MELANOMA
     Dosage: 400 MILLIGRAM, QD
     Route: 048
     Dates: start: 20200129, end: 20200207
  2. VANCOMYCIN [Suspect]
     Active Substance: VANCOMYCIN
     Indication: METASTATIC MALIGNANT MELANOMA
     Dosage: 125 MILLIGRAM, QD
     Route: 065
  3. OXYCODONE [Concomitant]
     Active Substance: OXYCODONE
     Indication: PRODUCT USED FOR UNKNOWN INDICATION
     Dosage: UNK
     Route: 065
     Dates: start: 20191203
  4. NIVOLUMAB [Suspect]
     Active Substance: NIVOLUMAB
     Indication: METASTATIC MALIGNANT MELANOMA
     Dosage: 480 MILLIGRAM, QD
     Route: 042
     Dates: start: 20200129, end: 20200129

REACTIONS (3)
  - Bacteraemia [Recovered/Resolved]
  - Intestinal perforation [Recovered/Resolved]
  - Fistula [Unknown]

NARRATIVE: CASE EVENT DATE: 20200207
